FAERS Safety Report 8095474-1 (Version None)
Quarter: 2012Q1

REPORT INFORMATION
  Report Type: 
  Country: None (occurrence: None)
  Receive Date: 20120129
  Receipt Date: 20111216
  Transmission Date: 20120608
  Serious: No
  Sender: FDA-Public Use
  Company Number: US-ABBOTT-11P-163-0884301-00

PATIENT
  Age: 58 Year
  Sex: Male

DRUGS (4)
  1. ANDROGEL [Concomitant]
     Indication: BONE DISORDER
     Dosage: 2 PUMPS PER DAY
  2. HUMIRA [Suspect]
     Indication: RHEUMATOID ARTHRITIS
  3. METHOTREXATE [Concomitant]
     Indication: RHEUMATOID ARTHRITIS
     Dosage: 3 PILLS A WEEK
  4. FOSAMAX PLUS D [Concomitant]
     Indication: OSTEOPOROSIS
     Dosage: 1 PILL A WEEK

REACTIONS (3)
  - DRUG DOSE OMISSION [None]
  - DEVICE MALFUNCTION [None]
  - INJECTION SITE HAEMORRHAGE [None]
